FAERS Safety Report 4845418-8 (Version None)
Quarter: 2005Q4

REPORT INFORMATION
  Report Type: 
  Country: None (occurrence: None)
  Receive Date: 20051125
  Receipt Date: 20051111
  Transmission Date: 20060501
  Serious: Yes (Other)
  Sender: FDA-Public Use
  Company Number: 2005156457

PATIENT
  Age: 71 Year
  Sex: Female

DRUGS (2)
  1. LATANOPROST [Suspect]
     Indication: ANGLE CLOSURE GLAUCOMA
  2. TIMOLOL MALEATE [Concomitant]

REACTIONS (4)
  - CHOROIDAL DETACHMENT [None]
  - EYE OPERATION COMPLICATION [None]
  - POSTERIOR CAPSULE RUPTURE [None]
  - VISION BLURRED [None]
